FAERS Safety Report 8024237-8 (Version None)
Quarter: 2012Q1

REPORT INFORMATION
  Report Type: 
  Country: None (occurrence: None)
  Receive Date: 20120105
  Receipt Date: 20120103
  Transmission Date: 20120608
  Serious: Yes (Other)
  Sender: FDA-Public Use
  Company Number: PHEH2012US000552

PATIENT
  Sex: Male

DRUGS (1)
  1. GILENYA [Suspect]
     Indication: MULTIPLE SCLEROSIS
     Dosage: 0.5 MG, QD
     Route: 048
     Dates: start: 20111101, end: 20120103

REACTIONS (5)
  - HYPOAESTHESIA [None]
  - EYELID DISORDER [None]
  - LIP DISORDER [None]
  - EYELID IRRITATION [None]
  - VIITH NERVE PARALYSIS [None]
